FAERS Safety Report 10185879 (Version 1)
Quarter: 2014Q2

REPORT INFORMATION
  Report Type: Report from Study
  Country: US (occurrence: US)
  Receive Date: 20140521
  Receipt Date: 20140521
  Transmission Date: 20141212
  Serious: Yes (Hospitalization)
  Sender: FDA-Public Use
  Company Number: PHHO2014US007138

PATIENT
  Age: 21 Year
  Sex: Male
  Weight: 41.7 kg

DRUGS (11)
  1. ZOMETA [Suspect]
     Indication: NEUROBLASTOMA
     Dosage: 4 MG, UNK
     Route: 042
     Dates: start: 20120723
  2. ALDESLEUKIN [Suspect]
     Indication: NEUROBLASTOMA
     Dosage: 4.5 MIU, UNK
     Dates: start: 20120723, end: 20120727
  3. IRINOTECAN [Suspect]
  4. OXALIPLATIN [Suspect]
  5. GEMCITABINE [Suspect]
  6. ZOFRAN [Concomitant]
     Dosage: PRN
  7. OXYCONTIN [Concomitant]
     Dosage: UNK
     Dates: start: 20120515
  8. CITRACAL-D [Concomitant]
     Dosage: UNK
     Dates: start: 20120604
  9. NEUTRA-PHOS [Concomitant]
     Dosage: UNK
     Dates: start: 20120625
  10. LORTAB [Concomitant]
     Dosage: UNK
     Dates: start: 20120627
  11. BACTRIM [Concomitant]
     Dosage: UNK
     Dates: start: 20061024

REACTIONS (1)
  - Pancreatitis [Unknown]
